FAERS Safety Report 8744367 (Version 2)
Quarter: 2012Q4

REPORT INFORMATION
  Report Type: 
  Country: US (occurrence: US)
  Receive Date: 20120825
  Receipt Date: 20120906
  Transmission Date: 20130627
  Serious: Yes (Life-Threatening)
  Sender: FDA-Public Use
  Company Number: US-009507513-1208USA008795

PATIENT

DRUGS (9)
  1. MAXALT MLT [Suspect]
     Indication: MIGRAINE
     Dosage: UNK, prn
     Route: 048
  2. FIORICET [Concomitant]
  3. ONDANSETRON [Concomitant]
  4. QUETIAPINE FUMARATE [Concomitant]
  5. CYCLOBENZAPRINE HYDROCHLORIDE [Concomitant]
  6. METAXALONE [Concomitant]
  7. LEVOTHYROXINE SODIUM [Concomitant]
  8. MEDROL [Concomitant]
  9. MAXALT MLT [Suspect]

REACTIONS (1)
  - Pericardial effusion [Not Recovered/Not Resolved]
